FAERS Safety Report 21713473 (Version 1)
Quarter: 2022Q4

REPORT INFORMATION
  Report Type: Report from Study
  Country: US (occurrence: US)
  Receive Date: 20221212
  Receipt Date: 20221212
  Transmission Date: 20230113
  Serious: Yes (Hospitalization)
  Sender: FDA-Public Use
  Company Number: US-BRISTOL-MYERS SQUIBB COMPANY-2022-135716

PATIENT
  Age: 64 Year
  Sex: Male
  Weight: 68.04 kg

DRUGS (29)
  1. IPILIMUMAB [Suspect]
     Active Substance: IPILIMUMAB
     Indication: Pancreatic carcinoma
     Route: 042
     Dates: start: 20210510, end: 20210712
  2. NIRAPARIB [Suspect]
     Active Substance: NIRAPARIB
     Indication: Pancreatic carcinoma
     Route: 048
     Dates: start: 20210510, end: 20220810
  3. ALPRAZOLAM [Concomitant]
     Active Substance: ALPRAZOLAM
     Indication: Agitation
     Dosage: TAKE 1 TABLET BY MOUTH DAILY AT BEDTIME AS NEEDED (AGITATION)
     Route: 048
     Dates: start: 20221018
  4. AMLODIPINE [Concomitant]
     Active Substance: AMLODIPINE BESYLATE
     Indication: Product used for unknown indication
     Route: 048
  5. DOXYLAMINE SUCCINATE [Concomitant]
     Active Substance: DOXYLAMINE SUCCINATE
     Indication: Product used for unknown indication
     Dosage: SLEEP, (UNISOM PO), TAKE  BY MOUTH DAILY AT BEDTME
     Route: 048
  6. INSULIN ASPART [Concomitant]
     Active Substance: INSULIN ASPART
     Indication: Product used for unknown indication
     Dosage: 100 UNIT/ML VIAL INJECTION, INJECT UNDER THE SKIN 3 TIMES A DAY WITH MEALS
     Route: 058
  7. INSULIN ASPART [Concomitant]
     Active Substance: INSULIN ASPART
     Dosage: INJECT  UNDER THE SKIN IF NEEDED. NOVOLOGBASED ON SLIDING SCALE AND CARBOHYDRATE INTAKE
  8. TRESIBA [Concomitant]
     Active Substance: INSULIN DEGLUDEC
     Indication: Product used for unknown indication
     Route: 058
     Dates: start: 20221108
  9. TRESIBA [Concomitant]
     Active Substance: INSULIN DEGLUDEC
     Dosage: INJECT 5 UNITS UNDER THE SKIN DAILY AT BEDTIME.
  10. LEVOTHYROXINE [Concomitant]
     Active Substance: LEVOTHYROXINE
     Indication: Hypothyroidism
     Dosage: 112 MCG TABLET, TAKE 112 MCG BY MOUTH DAILY. 1/2 TABLET ON SUNDAYS
     Route: 048
     Dates: start: 20220323
  11. LISINOPRIL [Concomitant]
     Active Substance: LISINOPRIL
     Indication: Product used for unknown indication
     Dosage: AT BEDTIME
     Route: 048
     Dates: start: 20220927
  12. MELATONIN [Concomitant]
     Active Substance: MELATONIN
     Indication: Product used for unknown indication
     Dosage: TAKE 10 MG DAILY BY MOUTH DAILY AT BEDTIME
     Route: 048
  13. VITAMINS [Concomitant]
     Active Substance: VITAMINS
     Indication: Product used for unknown indication
     Route: 048
  14. NIRAPARIB TOSYLATE MONOHYDRATE [Concomitant]
     Active Substance: NIRAPARIB TOSYLATE MONOHYDRATE
     Indication: Product used for unknown indication
     Dosage: TAKE  BY MOUTH.
     Route: 048
  15. OMEPRAZOLE [Concomitant]
     Active Substance: OMEPRAZOLE
     Indication: Product used for unknown indication
     Route: 048
     Dates: start: 20220412
  16. ROSUVASTATIN [Concomitant]
     Active Substance: ROSUVASTATIN
     Indication: Product used for unknown indication
     Dosage: AKE 20 MG BY MOUTH DAILY.
     Route: 048
     Dates: start: 20220624
  17. VITAMIN B12 [Concomitant]
     Active Substance: CYANOCOBALAMIN
     Indication: Product used for unknown indication
     Route: 048
  18. VITAMIN D3 [Concomitant]
     Active Substance: CHOLECALCIFEROL
     Indication: Product used for unknown indication
     Dosage: 1000 UNITS TABLET, TAKE 2,000 UNITS BY MOUTH DAILY
     Route: 048
  19. FLUOROURACIL\IRINOTECAN\LEUCOVORIN\OXALIPLATIN [Concomitant]
     Active Substance: FLUOROURACIL\IRINOTECAN\LEUCOVORIN\OXALIPLATIN
     Indication: Chemotherapy
     Dosage: CHEMO
  20. IBUPROFEN [Concomitant]
     Active Substance: IBUPROFEN
     Indication: Product used for unknown indication
     Dosage: BY MOUTH IF NEEDED.
     Route: 048
  21. ONDANSETRON [Concomitant]
     Active Substance: ONDANSETRON
     Indication: Nausea
     Dosage: TAKE 1 TABLET BY MOUTH IF NEEDED.?1 TABLET BY MOUTH EVERY 8 HOURS AS NEEDED (NAUSEA OR VOMITING)
     Route: 048
     Dates: start: 20221108
  22. ONDANSETRON [Concomitant]
     Active Substance: ONDANSETRON
     Indication: Vomiting
  23. OXYCODONE AND ACETAMINOPHEN [Concomitant]
     Active Substance: ACETAMINOPHEN\OXYCODONE HYDROCHLORIDE
     Indication: Product used for unknown indication
     Dosage: 5-325 MG PER TABLET, TAKE 1 TABLET BY MOUTH EVERY 4 HOURS AS NEEDED.
     Route: 048
     Dates: start: 20221021
  24. ACETAMINOPHEN [Concomitant]
     Active Substance: ACETAMINOPHEN
     Indication: Pain
     Dosage: 2 TABLETS BY MOUTH EVERY 6 HOURS AS NEEDED (MILD PAIN) FOR UP TO 10 DAYS, Q6H PRN
     Dates: start: 20221108, end: 20221108
  25. SIMETHICONE (DIMETHICONE) [Concomitant]
     Active Substance: DIMETHICONE
     Indication: Flatulence
     Dosage: CHEW 1 TABLET EVERY 6 HOURS AS NEEDED
     Dates: start: 20221108
  26. TAMSULOSIN [Concomitant]
     Active Substance: TAMSULOSIN
     Indication: Flatulence
     Dosage: CHEW 1 TABLET EVERY 6 HOURS AS NEEDED
     Dates: start: 20221108
  27. ZINC [ZINC SULFATE MONOHYDRATE] [Concomitant]
     Indication: Product used for unknown indication
     Dosage: 1 TAB
     Route: 048
  28. ZARXIO [Concomitant]
     Active Substance: FILGRASTIM-SNDZ
     Indication: Leukopenia
  29. DOCUSATE SODIUM [Concomitant]
     Active Substance: DOCUSATE SODIUM
     Indication: Product used for unknown indication

REACTIONS (2)
  - Dehydration [Unknown]
  - COVID-19 [Unknown]

NARRATIVE: CASE EVENT DATE: 20221103
